FAERS Safety Report 9848231 (Version 1)
Quarter: 2013Q4

REPORT INFORMATION
  Report Type: Spontaneous
  Country: US (occurrence: None)
  Receive Date: 20131223
  Receipt Date: 20131223
  Transmission Date: 20140711
  Serious: No
  Sender: FDA-Public Use
  Company Number: 1000050994

PATIENT
  Age: 85 Year
  Sex: Female

DRUGS (7)
  1. LINZESS [Suspect]
     Indication: IRRITABLE BOWEL SYNDROME
     Dosage: 145 MCG (145 MCG, 1 IN 1 D), ORAL
     Route: 048
     Dates: start: 201310, end: 201310
  2. KEFLEX (CEPHALEXIN) (CEPHALEXIN) [Concomitant]
  3. DIOVAN (VALSARTAN) (VALSARTAN) [Concomitant]
  4. LASIX (FUROSEMIDE) (FUROSEMIDE) [Concomitant]
  5. TOPROL (METOPROLOL SUCCINATE) (METOPROLOL SUCCINATE) [Concomitant]
  6. POTASSIUM CHLORIDE (POTASSIUM CHLORIDE) (POTASSIUM CHLORIDE)? [Concomitant]
  7. XANAX (ALPRAZOLAM) (ALPRAZOLAM) [Concomitant]

REACTIONS (2)
  - Diarrhoea [None]
  - Faecal incontinence [None]
